FAERS Safety Report 9461510 (Version 2)
Quarter: 2013Q4

REPORT INFORMATION
  Report Type: Report from Study
  Country: AR (occurrence: AR)
  Receive Date: 20130816
  Receipt Date: 20131021
  Transmission Date: 20140711
  Serious: Yes (Other)
  Sender: FDA-Public Use
  Company Number: PHHY2013AR088182

PATIENT
  Sex: Male

DRUGS (2)
  1. ONBREZ [Suspect]
     Indication: EMPHYSEMA
     Dosage: 150 UG, QD
  2. ONBREZ [Suspect]
     Indication: OFF LABEL USE

REACTIONS (1)
  - Subcutaneous abscess [Recovering/Resolving]
